FAERS Safety Report 9816442 (Version 2)
Quarter: 2014Q3

REPORT INFORMATION
  Report Type: Report from Study
  Country: US (occurrence: US)
  Receive Date: 20140114
  Receipt Date: 20140903
  Transmission Date: 20150326
  Serious: Yes (Hospitalization)
  Sender: FDA-Public Use
  Company Number: US-BAYER-2014-005875

PATIENT
  Age: 77 Year
  Sex: Female

DRUGS (16)
  1. BETASERON [Suspect]
     Active Substance: INTERFERON BETA-1B
     Indication: RELAPSING-REMITTING MULTIPLE SCLEROSIS
     Dosage: 8 MIU, QOD
     Route: 058
     Dates: start: 20100820
  2. LYRICA [Concomitant]
     Active Substance: PREGABALIN
     Dosage: 200 MG, BID
  3. TYLENOL EXTRA STRENGTH [Concomitant]
     Active Substance: ACETAMINOPHEN
     Dosage: 500 MG, PRN
  4. LUTEIN [Concomitant]
     Active Substance: LUTEIN
     Dosage: 20 MG, DAILY
  5. TEGRETOL [Suspect]
     Active Substance: CARBAMAZEPINE
     Indication: FACIAL PAIN
  6. GLUCOSAMINE W/CHONDROITIN SULFATE [Concomitant]
     Dosage: 1.000 MG, TID
  7. MAGNESIUM [MAGNESIUM] [Concomitant]
     Dosage: DAILY
  8. VITAMIN C [ASCORBIC ACID] [Concomitant]
     Dosage: 500 MG, DAILY
  9. ASPIRINE [Concomitant]
     Active Substance: ASPIRIN
     Dosage: 162 MG, DAILY
  10. BENAZEPRIL [Concomitant]
     Active Substance: BENAZEPRIL\BENAZEPRIL HYDROCHLORIDE
     Dosage: 20 MG, BID
  11. BACLOFEN. [Concomitant]
     Active Substance: BACLOFEN
     Dosage: 20 MG, TID
  12. COENZYME Q10 [Concomitant]
     Active Substance: UBIDECARENONE
     Dosage: 100 MG, DAILY
  13. TRAMADOL [Concomitant]
     Active Substance: TRAMADOL
     Dosage: 50 MG, QID
  14. VITAMIN B COMPLEX [CYANOCOBALAMIN] [Concomitant]
  15. VITAMIN D [COLECALCIFEROL] [Concomitant]
     Dosage: 1.000 U, DAILY
  16. SIMVASTATIN. [Concomitant]
     Active Substance: SIMVASTATIN
     Dosage: 20 MG, Q HS

REACTIONS (9)
  - Facial pain [Recovering/Resolving]
  - Muscular weakness [Not Recovered/Not Resolved]
  - Back pain [Not Recovered/Not Resolved]
  - Coordination abnormal [Not Recovered/Not Resolved]
  - Spinal disorder [Not Recovered/Not Resolved]
  - Restless legs syndrome [None]
  - Fall [None]
  - Muscle spasticity [None]
  - Fatigue [None]

NARRATIVE: CASE EVENT DATE: 2011
